FAERS Safety Report 5275012-9 (Version None)
Quarter: 2007Q1

REPORT INFORMATION
  Report Type: 
  Country: None (occurrence: None)
  Receive Date: 20070325
  Receipt Date: 20070316
  Transmission Date: 20070707
  Serious: Yes (Hospitalization)
  Sender: FDA-Public Use
  Company Number: US-ABBOTT-07P-163-0362309-00

PATIENT
  Age: 2 Year
  Sex: Male
  Weight: 7 kg

DRUGS (1)
  1. DEPAKOTE [Suspect]
     Indication: CONVULSION
     Dosage: 112 MG/KG
     Route: 048

REACTIONS (3)
  - BEZOAR [None]
  - DRUG LEVEL INCREASED [None]
  - MEDICATION RESIDUE [None]
